FAERS Safety Report 6088944-9 (Version None)
Quarter: 2009Q1

REPORT INFORMATION
  Report Type: 
  Country: None (occurrence: None)
  Receive Date: 20090219
  Receipt Date: 20090219
  Transmission Date: 20090719
  Serious: Yes (Other)
  Sender: FDA-Public Use
  Company Number: None

PATIENT
  Sex: Female
  Weight: 58.0604 kg

DRUGS (2)
  1. LEVETIRACETAM [Suspect]
     Indication: EPILEPSY
     Dosage: 1 TABLET TWICE A DAY MOUTH
     Route: 048
     Dates: start: 20090103, end: 20090203
  2. LEVETIRACETAM [Suspect]
     Indication: MIGRAINE
     Dosage: 1 TABLET TWICE A DAY MOUTH
     Route: 048
     Dates: start: 20090103, end: 20090203

REACTIONS (3)
  - DRUG INEFFECTIVE [None]
  - MIGRAINE [None]
  - PRODUCT QUALITY ISSUE [None]
